FAERS Safety Report 8096360-3 (Version None)
Quarter: 2012Q1

REPORT INFORMATION
  Report Type: 
  Country: None (occurrence: None)
  Receive Date: 20120131
  Receipt Date: 20120130
  Transmission Date: 20120608
  Serious: Yes (Death)
  Sender: FDA-Public Use
  Company Number: GXKR2012DE000720

PATIENT
  Age: 66 Year
  Sex: Male

DRUGS (3)
  1. METFORMIN HCL [Suspect]
     Indication: TYPE 2 DIABETES MELLITUS
     Route: 048
  2. TORSEMIDE [Concomitant]
     Indication: CARDIAC FAILURE
  3. COTRIM [Concomitant]
     Indication: URINARY TRACT INFECTION
     Route: 048

REACTIONS (8)
  - LACTIC ACIDOSIS [None]
  - DYSPNOEA [None]
  - VOMITING [None]
  - RENAL FAILURE ACUTE [None]
  - HYPERKALAEMIA [None]
  - NAUSEA [None]
  - BLOOD CREATININE INCREASED [None]
  - ACIDOSIS [None]
